FAERS Safety Report 6931692-0 (Version None)
Quarter: 2010Q3

REPORT INFORMATION
  Report Type: 
  Country: None (occurrence: None)
  Receive Date: 20100819
  Receipt Date: 20100809
  Transmission Date: 20110219
  Serious: Yes (Other)
  Sender: FDA-Public Use
  Company Number: US-PFIZER INC-2010100643

PATIENT
  Sex: Female

DRUGS (1)
  1. CHANTIX [Suspect]
     Dosage: UNK
     Dates: end: 20100808

REACTIONS (5)
  - ABNORMAL DREAMS [None]
  - AGGRESSION [None]
  - NAUSEA [None]
  - RASH [None]
  - SKIN EXFOLIATION [None]
